FAERS Safety Report 13181173 (Version 1)
Quarter: 2017Q1

REPORT INFORMATION
  Report Type: Spontaneous
  Country: US (occurrence: US)
  Receive Date: 20170202
  Receipt Date: 20170202
  Transmission Date: 20170428
  Serious: No
  Sender: FDA-Public Use
  Company Number: US-SMITH AND NEPHEW, INC-2016SMT00948

PATIENT
  Age: 51 Year
  Sex: Male
  Weight: 95.24 kg

DRUGS (5)
  1. REGRANEX [Suspect]
     Active Substance: BECAPLERMIN
     Indication: ULCER
     Dosage: UNK, AS DIRECTED
     Route: 061
     Dates: start: 201610, end: 20161024
  2. UNSPECIFIED MEDICATION(S) FOR KIDNEY RESPONSE [Concomitant]
  3. UNSPECIFIED MEDICATION(S) FOR BLOOD PRESSURE [Concomitant]
  4. UNSPECIFIED INSULIN PRODUCT [Concomitant]
  5. UNSPECIFIED MEDICATION(S) FOR CHOLESTEROL [Concomitant]

REACTIONS (2)
  - Inappropriate schedule of drug administration [Unknown]
  - Drug ineffective [Unknown]

NARRATIVE: CASE EVENT DATE: 201610
